FAERS Safety Report 4470779-1 (Version None)
Quarter: 2004Q4

REPORT INFORMATION
  Report Type: 
  Country: None (occurrence: None)
  Receive Date: 20041007
  Receipt Date: 20041007
  Transmission Date: 20050328
  Serious: Yes (Hospitalization)
  Sender: FDA-Public Use
  Company Number: None

PATIENT
  Sex: Male
  Weight: 106.1417 kg

DRUGS (5)
  1. CISPLATIN [Suspect]
     Indication: MESOTHELIOMA
     Dosage: 75 Q 21 DAYS
     Dates: start: 20040630
  2. GEMCITABINE [Suspect]
     Indication: MESOTHELIOMA
     Dosage: 1250 Q 21 DAYS
     Dates: start: 20040630
  3. RHUMAB VEGF [Suspect]
     Indication: MESOTHELIOMA
     Dosage: 15 Q 21 DAYS
     Dates: start: 20040630
  4. HEPARIN [Concomitant]
  5. HEPARIN SODIUM [Concomitant]

REACTIONS (1)
  - PULMONARY EMBOLISM [None]
